FAERS Safety Report 25371509 (Version 2)
Quarter: 2025Q2

REPORT INFORMATION
  Report Type: Spontaneous
  Country: JP (occurrence: JP)
  Receive Date: 20250529
  Receipt Date: 20250611
  Transmission Date: 20250717
  Serious: Yes (Life-Threatening, Hospitalization, Other)
  Sender: MERCK SHARP & DOHME LLC
  Company Number: JP-009507513-2288463

PATIENT
  Age: 60 Year
  Sex: Female

DRUGS (3)
  1. KEYTRUDA [Suspect]
     Active Substance: PEMBROLIZUMAB
     Route: 041
  2. PACLITAXEL [Suspect]
     Active Substance: PACLITAXEL
     Indication: Cervix carcinoma recurrent
     Route: 041
  3. CARBOPLATIN [Suspect]
     Active Substance: CARBOPLATIN
     Indication: Cervix carcinoma recurrent
     Route: 041

REACTIONS (9)
  - Febrile neutropenia [Unknown]
  - Meningitis [Unknown]
  - Immune-mediated pancytopenia [Unknown]
  - Renal impairment [Unknown]
  - Altered state of consciousness [Unknown]
  - Hepatic function abnormal [Unknown]
  - Immune-mediated enterocolitis [Unknown]
  - Immune-mediated enterocolitis [Unknown]
  - Disseminated intravascular coagulation [Unknown]
